FAERS Safety Report 8929239 (Version 1)
Quarter: 2012Q4

REPORT INFORMATION
  Report Type: 
  Country: US (occurrence: US)
  Receive Date: 20121127
  Receipt Date: 20121127
  Transmission Date: 20130627
  Serious: No
  Sender: FDA-Public Use
  Company Number: US-TEVA-371917USA

PATIENT
  Sex: Female

DRUGS (2)
  1. PROAIR HFA [Suspect]
  2. PENICILLIN [Suspect]

REACTIONS (2)
  - Rash [Unknown]
  - Pruritus [Not Recovered/Not Resolved]
